FAERS Safety Report 24656722 (Version 1)
Quarter: 2024Q4

REPORT INFORMATION
  Report Type: Report from Study
  Country: US (occurrence: US)
  Receive Date: 20241125
  Receipt Date: 20241125
  Transmission Date: 20250115
  Serious: Yes (Hospitalization, Other)
  Sender: ABBVIE
  Company Number: US-ABBVIE-5704726

PATIENT
  Age: 65 Year
  Sex: Female
  Weight: 75 kg

DRUGS (4)
  1. HUMIRA [Suspect]
     Active Substance: ADALIMUMAB
     Indication: Rheumatoid arthritis
     Route: 058
     Dates: end: 202402
  2. HUMIRA [Suspect]
     Active Substance: ADALIMUMAB
     Dosage: LAST ADMIN DATE: 2024
     Route: 058
     Dates: start: 20240326
  3. HUMIRA [Suspect]
     Active Substance: ADALIMUMAB
     Route: 058
     Dates: start: 20230801
  4. HUMIRA [Suspect]
     Active Substance: ADALIMUMAB
     Dosage: RESTARTED HUMIRA
     Route: 058
     Dates: start: 20240423

REACTIONS (8)
  - Haematoma [Unknown]
  - Medical device implantation [Not Recovered/Not Resolved]
  - Pain [Not Recovered/Not Resolved]
  - Back pain [Recovering/Resolving]
  - Nerve compression [Unknown]
  - Fall [Unknown]
  - Skin laceration [Unknown]
  - Cataract [Unknown]

NARRATIVE: CASE EVENT DATE: 20240315
